FAERS Safety Report 13280616 (Version 1)
Quarter: 2017Q1

REPORT INFORMATION
  Report Type: Spontaneous
  Country: MX (occurrence: MX)
  Receive Date: 20170301
  Receipt Date: 20170301
  Transmission Date: 20170428
  Serious: Yes (Death, Hospitalization, Other)
  Sender: FDA-Public Use
  Company Number: MX-ACTELION-A-CH2017-150085

PATIENT
  Age: 37 Year
  Sex: Female

DRUGS (2)
  1. HEPARIN [Concomitant]
     Active Substance: HEPARIN SODIUM
     Indication: CORONARY ARTERY THROMBOSIS
  2. ZEPENDO [Suspect]
     Active Substance: MACITENTAN
     Indication: PULMONARY ARTERIAL HYPERTENSION
     Dosage: 10 MG, QD
     Route: 048

REACTIONS (17)
  - Congenital coronary artery malformation [Fatal]
  - Loss of consciousness [Fatal]
  - Myocardial infarction [Fatal]
  - Acute myocardial infarction [Fatal]
  - Pulse absent [Fatal]
  - Azotaemia [Unknown]
  - Tachycardia [Fatal]
  - Chest pain [Fatal]
  - Adams-Stokes syndrome [Fatal]
  - Blood lactic acid increased [Fatal]
  - Hyperhidrosis [Fatal]
  - Sinus bradycardia [Fatal]
  - Hypotension [Fatal]
  - Oliguria [Unknown]
  - Metabolic acidosis [Fatal]
  - Electrocardiogram ST segment elevation [Fatal]
  - Oxygen saturation decreased [Fatal]

NARRATIVE: CASE EVENT DATE: 20161126
